FAERS Safety Report 4963092-7 (Version None)
Quarter: 2006Q2

REPORT INFORMATION
  Report Type: 
  Country: None (occurrence: None)
  Receive Date: 20060405
  Receipt Date: 20060325
  Transmission Date: 20061013
  Serious: Yes (Other)
  Sender: FDA-Public Use
  Company Number: SW12247

PATIENT
  Age: 83 Year
  Sex: Female

DRUGS (2)
  1. AMOXICILLIN + CLAVULANATE POTASSIUM [Suspect]
     Indication: DRUG USE FOR UNKNOWN INDICATION
     Dosage: 1.2G PER DAY
     Route: 065
  2. BUPIVACAINE [Concomitant]
     Dosage: 2.5ML PER DAY
     Route: 065

REACTIONS (3)
  - ANAPHYLACTIC SHOCK [None]
  - ELECTROMECHANICAL DISSOCIATION [None]
  - HYPOTENSION [None]
